FAERS Safety Report 8421682-3 (Version None)
Quarter: 2012Q2

REPORT INFORMATION
  Report Type: 
  Country: None (occurrence: None)
  Receive Date: 20120608
  Receipt Date: 20120531
  Transmission Date: 20120825
  Serious: Yes (Other)
  Sender: FDA-Public Use
  Company Number: DE-JNJFOC-20120602210

PATIENT
  Sex: Female
  Weight: 74 kg

DRUGS (10)
  1. RIVAROXABAN [Suspect]
     Route: 048
     Dates: start: 20120411, end: 20120425
  2. AXURA [Concomitant]
  3. CELEBREX [Concomitant]
  4. PCM [Concomitant]
  5. ALLOPURINOL [Concomitant]
  6. RIVAROXABAN [Suspect]
     Route: 048
     Dates: start: 20120411, end: 20120425
  7. FENOFIBRATE [Concomitant]
  8. RIVAROXABAN [Suspect]
     Indication: HIP ARTHROPLASTY
     Route: 048
  9. RIVAROXABAN [Suspect]
     Indication: THROMBOSIS PROPHYLAXIS
     Route: 048
  10. ENALAPRIL MALEATE [Concomitant]

REACTIONS (2)
  - ECZEMA [None]
  - DRUG ERUPTION [None]
